FAERS Safety Report 9753251 (Version 3)
Quarter: 2015Q3

REPORT INFORMATION
  Report Type: Spontaneous
  Country: US (occurrence: US)
  Receive Date: 20131213
  Receipt Date: 20150805
  Transmission Date: 20151125
  Serious: No
  Sender: FDA-Public Use
  Company Number: US-GILEAD-2010-0027627

PATIENT
  Age: 76 Year
  Sex: Female
  Weight: 30.84 kg

DRUGS (13)
  1. LETAIRIS [Suspect]
     Active Substance: AMBRISENTAN
     Indication: PULMONARY ARTERIAL HYPERTENSION
     Route: 048
     Dates: start: 20100127, end: 20100227
  2. PLAVIX [Concomitant]
     Active Substance: CLOPIDOGREL BISULFATE
  3. IPRATROPIUM BR [Concomitant]
  4. ELAVIL [Concomitant]
     Active Substance: AMITRIPTYLINE HYDROCHLORIDE
  5. LASIX [Concomitant]
     Active Substance: FUROSEMIDE
  6. KLOR-CON [Concomitant]
     Active Substance: POTASSIUM CHLORIDE
  7. OXYGEN. [Concomitant]
     Active Substance: OXYGEN
  8. ALBUTEROL. [Concomitant]
     Active Substance: ALBUTEROL
  9. REVATIO [Concomitant]
     Active Substance: SILDENAFIL CITRATE
  10. NORVASC [Concomitant]
     Active Substance: AMLODIPINE BESYLATE
  11. ZOCOR [Concomitant]
     Active Substance: SIMVASTATIN
  12. THEOPHYLLINE [Concomitant]
     Active Substance: THEOPHYLLINE ANHYDROUS
  13. PEPCID [Concomitant]
     Active Substance: FAMOTIDINE

REACTIONS (3)
  - Peripheral swelling [Unknown]
  - Dyspnoea [Unknown]
  - Constipation [Unknown]
